FAERS Safety Report 6524175-3 (Version None)
Quarter: 2009Q4

REPORT INFORMATION
  Report Type: 
  Country: None (occurrence: None)
  Receive Date: 20091231
  Receipt Date: 20091221
  Transmission Date: 20100525
  Serious: Yes (Other)
  Sender: FDA-Public Use
  Company Number: US-GENENTECH-296196

PATIENT
  Sex: Male
  Weight: 36.4 kg

DRUGS (3)
  1. NUTROPIN [Suspect]
     Indication: GROWTH HORMONE DEFICIENCY
     Dosage: 1.4 MG, QD
     Route: 058
     Dates: start: 20090212
  2. NUTROPIN [Suspect]
     Dosage: 2.0 MG, QD
     Route: 058
     Dates: start: 20090601
  3. NUTROPIN [Suspect]
     Dosage: 2.4 MG, QD
     Route: 058
     Dates: start: 20091008, end: 20091210

REACTIONS (2)
  - ARTERIOVENOUS MALFORMATION [None]
  - HAEMANGIOMA [None]
